FAERS Safety Report 9120559 (Version 1)
Quarter: 2013Q1

REPORT INFORMATION
  Report Type: Report from Study
  Country: MY (occurrence: MY)
  Receive Date: 20130226
  Receipt Date: 20130226
  Transmission Date: 20140127
  Serious: Yes (Other)
  Sender: FDA-Public Use
  Company Number: MY-ROCHE-1193482

PATIENT
  Age: 44 Year
  Sex: Female
  Weight: 63 kg

DRUGS (4)
  1. COPEGUS [Suspect]
     Indication: PRODUCT USED FOR UNKNOWN INDICATION
     Route: 048
  2. PEGASYS [Suspect]
     Indication: PRODUCT USED FOR UNKNOWN INDICATION
     Route: 058
  3. DAONIL [Concomitant]
     Route: 048
  4. METFORMIN [Concomitant]
     Route: 048

REACTIONS (2)
  - Abortion spontaneous [Unknown]
  - Exposure during pregnancy [Unknown]
